FAERS Safety Report 4373499-7 (Version None)
Quarter: 2004Q1

REPORT INFORMATION
  Report Type: 
  Country: None (occurrence: None)
  Receive Date: 20040305
  Receipt Date: 20040123
  Transmission Date: 20041129
  Serious: Yes (Other)
  Sender: FDA-Public Use
  Company Number: 2004UW01342

PATIENT

DRUGS (1)
  1. CRESTOR [Suspect]
     Dosage: 10 MG DAILY PO
     Route: 048

REACTIONS (3)
  - ABNORMAL FAECES [None]
  - FREQUENT BOWEL MOVEMENTS [None]
  - WEIGHT DECREASED [None]
